FAERS Safety Report 7623544-8 (Version None)
Quarter: 2011Q3

REPORT INFORMATION
  Report Type: 
  Country: None (occurrence: None)
  Receive Date: 20110720
  Receipt Date: 20110707
  Transmission Date: 20111222
  Serious: Yes (Other)
  Sender: FDA-Public Use
  Company Number: JP-ELI_LILLY_AND_COMPANY-JP201107003574

PATIENT
  Sex: Female

DRUGS (1)
  1. ZYPREXA [Suspect]
     Dosage: 5 MG, QD
     Route: 048

REACTIONS (5)
  - NEOPLASM MALIGNANT [None]
  - CONSTIPATION [None]
  - TREMOR [None]
  - BLOOD CHOLESTEROL INCREASED [None]
  - THIRST [None]
